FAERS Safety Report 25808276 (Version 1)
Quarter: 2025Q3

REPORT INFORMATION
  Report Type: Spontaneous
  Country: US (occurrence: US)
  Receive Date: 20250916
  Receipt Date: 20250916
  Transmission Date: 20251021
  Serious: Yes (Other)
  Sender: AMGEN
  Company Number: US-AMGEN-USASP2025180483

PATIENT
  Age: 43 Year
  Sex: Male

DRUGS (2)
  1. RITUXIMAB [Suspect]
     Active Substance: RITUXIMAB
     Indication: Ocular pemphigoid
     Route: 065
  2. Immunoglobulin [Concomitant]
     Route: 040

REACTIONS (3)
  - Ocular pemphigoid [Unknown]
  - Drug effective for unapproved indication [Unknown]
  - Off label use [Unknown]
